FAERS Safety Report 4570017-5 (Version None)
Quarter: 2005Q1

REPORT INFORMATION
  Report Type: 
  Country: None (occurrence: None)
  Receive Date: 20050204
  Receipt Date: 20050117
  Transmission Date: 20050727
  Serious: Yes (Hospitalization)
  Sender: FDA-Public Use
  Company Number: JP-BRISTOL-MYERS SQUIBB COMPANY-12829172

PATIENT
  Age: 84 Year
  Sex: Male

DRUGS (5)
  1. MAXIPIME [Suspect]
     Indication: PNEUMONIA
     Route: 041
     Dates: start: 20041225, end: 20050110
  2. MINOPEN [Suspect]
     Indication: PNEUMONIA
     Route: 041
     Dates: start: 20041224, end: 20050110
  3. KASHILON [Concomitant]
     Dates: start: 20041223, end: 20050110
  4. PROSTARMON F [Concomitant]
     Route: 041
     Dates: start: 20041229, end: 20050103
  5. PANTOSIN [Concomitant]
     Route: 041
     Dates: start: 20041229

REACTIONS (5)
  - ALANINE AMINOTRANSFERASE INCREASED [None]
  - ASPARTATE AMINOTRANSFERASE INCREASED [None]
  - BILE DUCT OBSTRUCTION [None]
  - BLOOD ALKALINE PHOSPHATASE INCREASED [None]
  - HEPATIC FUNCTION ABNORMAL [None]
